FAERS Safety Report 7679118-6 (Version None)
Quarter: 2011Q3

REPORT INFORMATION
  Report Type: 
  Country: None (occurrence: None)
  Receive Date: 20110812
  Receipt Date: 20110307
  Transmission Date: 20111222
  Serious: No
  Sender: FDA-Public Use
  Company Number: US-BAYER-2011-020928

PATIENT
  Age: 85 Year
  Sex: Female

DRUGS (7)
  1. BELLADONNA EXTRACT [Concomitant]
  2. PROZAC [Concomitant]
  3. PANCRELIPASE [Concomitant]
  4. ASPIRIN [Concomitant]
  5. PANTOPRAZOLE [Concomitant]
  6. CIPROFLOXACIN [Suspect]
     Indication: CYSTITIS
     Dosage: 500 MG, TABLET
     Route: 048
     Dates: start: 20110306
  7. HYDROCHLOROTHIAZIDE [Concomitant]

REACTIONS (2)
  - MUSCLE STRAIN [None]
  - THROAT IRRITATION [None]
